FAERS Safety Report 6232384-6 (Version None)
Quarter: 2009Q2

REPORT INFORMATION
  Report Type: 
  Country: None (occurrence: None)
  Receive Date: 20090617
  Receipt Date: 20090608
  Transmission Date: 20091009
  Serious: Yes (Death)
  Sender: FDA-Public Use
  Company Number: PHHY2009US22392

PATIENT
  Age: 54 Year
  Sex: Female

DRUGS (9)
  1. CYCLOSPORINE [Suspect]
     Indication: LUNG TRANSPLANT
     Dosage: UNK
  2. AZATHIOPRINE [Suspect]
     Indication: LUNG TRANSPLANT
  3. PREDNISONE [Suspect]
     Indication: LUNG TRANSPLANT
  4. ANTI-THYMOCYTE GLOBULIN NOS [Concomitant]
     Indication: LUNG TRANSPLANT
     Dosage: UNK
  5. ACYCLOVIR [Concomitant]
     Indication: ANTIVIRAL PROPHYLAXIS
     Dosage: 800 MG, TID
     Route: 048
  6. GANCICLOVIR [Concomitant]
     Indication: ANTIVIRAL PROPHYLAXIS
     Dosage: 5 MG/KG, Q12H
     Route: 042
  7. GANCICLOVIR [Concomitant]
     Dosage: 5 MG/KG, QD
     Route: 042
  8. CYTOGAM [Concomitant]
     Indication: ANTIVIRAL PROPHYLAXIS
     Dosage: 100 MG/KG
     Route: 051
  9. FOSCARNET [Concomitant]
     Dosage: UNK

REACTIONS (1)
  - PNEUMONIA CYTOMEGALOVIRAL [None]
